FAERS Safety Report 7777305-X (Version None)
Quarter: 2011Q3

REPORT INFORMATION
  Report Type: 
  Country: None (occurrence: None)
  Receive Date: 20110926
  Receipt Date: 20110920
  Transmission Date: 20111222
  Serious: Yes (Death)
  Sender: FDA-Public Use
  Company Number: PHHY2011JP67300

PATIENT
  Sex: Male
  Weight: 62 kg

DRUGS (26)
  1. CYTARABINE [Concomitant]
     Dosage: 40 MG, UNK
  2. METHYLPREDNISOLONE [Concomitant]
     Indication: ACUTE LYMPHOCYTIC LEUKAEMIA
     Dosage: 100 MG, UNK
     Route: 041
     Dates: start: 20080421, end: 20080423
  3. IMATINIB MESYLATE [Suspect]
     Dosage: 600 MG, DAILY
     Route: 048
     Dates: start: 20080519, end: 20080615
  4. METHOTREXATE [Concomitant]
     Dosage: 1765 MG, UNK
     Route: 041
  5. LASIX [Concomitant]
     Indication: PROPHYLAXIS
     Dosage: 10 MG, UNK
     Route: 048
     Dates: start: 20080301
  6. IMATINIB MESYLATE [Suspect]
     Indication: ACUTE LYMPHOCYTIC LEUKAEMIA
     Dosage: 400 MG, DAILY
     Route: 048
     Dates: start: 20080301, end: 20080303
  7. IMATINIB MESYLATE [Suspect]
     Dosage: 600 MG, DAILY
     Route: 048
     Dates: start: 20080714, end: 20080810
  8. VINCRISTINE SULFATE [Concomitant]
     Indication: ACUTE LYMPHOCYTIC LEUKAEMIA
     Dosage: 2 MG, UNK
     Route: 041
     Dates: start: 20080301
  9. VINCRISTINE SULFATE [Concomitant]
     Dosage: 1 MG, UNK
     Route: 041
     Dates: end: 20080308
  10. CYTARABINE [Concomitant]
     Dosage: 40 MG, UNK
     Dates: end: 20080616
  11. DECADRON [Concomitant]
     Dosage: 4 MG, UNK
     Dates: start: 20080317
  12. DECADRON [Concomitant]
     Dosage: 4 MG, UNK
  13. DEXAMETHASONE [Concomitant]
     Indication: ACUTE LYMPHOCYTIC LEUKAEMIA
     Dosage: 4 MG, UNK
     Dates: start: 20080616, end: 20080616
  14. IMATINIB MESYLATE [Suspect]
     Dosage: 600 MG, DAILY
     Route: 048
     Dates: start: 20080304, end: 20080418
  15. METHOTREXATE [Concomitant]
     Dosage: 15 MG, UNK
  16. IMATINIB MESYLATE [Suspect]
     Dosage: 600 MG, DAILY
     Route: 048
     Dates: start: 20080901, end: 20080907
  17. METHOTREXATE [Concomitant]
     Indication: ACUTE LYMPHOCYTIC LEUKAEMIA
     Dosage: 15 MG, UNK
     Dates: start: 20080317
  18. METHOTREXATE [Concomitant]
     Dosage: 15 MG, UNK
  19. METHOTREXATE [Concomitant]
     Dosage: 15 MG, UNK
     Dates: end: 20080616
  20. CYTARABINE [Concomitant]
     Dosage: 3520 MG, UNK
  21. PAXIL [Concomitant]
     Indication: PROPHYLAXIS
     Dosage: 30 MG, UNK
     Route: 048
     Dates: start: 20080301
  22. URSO 250 [Concomitant]
     Indication: PROPHYLAXIS
     Dosage: 300 MG, UNK
     Route: 048
     Dates: start: 20080301
  23. SPRYCEL [Suspect]
     Indication: ACUTE LYMPHOCYTIC LEUKAEMIA
  24. CYTARABINE [Concomitant]
     Indication: ACUTE LYMPHOCYTIC LEUKAEMIA
     Dosage: 40 MG, UNK
     Dates: start: 20080317
  25. CYTARABINE [Concomitant]
     Dosage: 40 MG, UNK
  26. DECADRON [Concomitant]
     Dosage: 4 MG, UNK
     Dates: end: 20080519

REACTIONS (1)
  - ACUTE MYELOID LEUKAEMIA [None]
